FAERS Safety Report 25712118 (Version 1)
Quarter: 2025Q3

REPORT INFORMATION
  Report Type: Spontaneous
  Country: US (occurrence: US)
  Receive Date: 20250821
  Receipt Date: 20250821
  Transmission Date: 20251021
  Serious: Yes (Other)
  Sender: Kenvue
  Company Number: US-KENVUE-20250804693

PATIENT
  Sex: Male
  Weight: 3.572 kg

DRUGS (2)
  1. TYLENOL [Suspect]
     Active Substance: ACETAMINOPHEN
     Indication: Migraine
     Route: 064
     Dates: start: 202404
  2. EXCEDRIN TENSION HEADACHE [Suspect]
     Active Substance: ACETAMINOPHEN\CAFFEINE
     Indication: Migraine
     Route: 064

REACTIONS (3)
  - Pyelocaliectasis [Recovering/Resolving]
  - Foetal exposure during pregnancy [Unknown]
  - Postnatal growth restriction [Recovered/Resolved]

NARRATIVE: CASE EVENT DATE: 20241209
